FAERS Safety Report 7582526-5 (Version None)
Quarter: 2011Q2

REPORT INFORMATION
  Report Type: 
  Country: None (occurrence: None)
  Receive Date: 20110630
  Receipt Date: 20110624
  Transmission Date: 20111010
  Serious: No
  Sender: FDA-Public Use
  Company Number: US-PFIZER INC-2011142609

PATIENT
  Sex: Male

DRUGS (2)
  1. SPIRIVA [Suspect]
     Dosage: UNK
     Route: 055
  2. LIPITOR [Suspect]

REACTIONS (2)
  - DYSPHONIA [None]
  - ASTHMA [None]
